FAERS Safety Report 5707416-1 (Version None)
Quarter: 2008Q2

REPORT INFORMATION
  Report Type: 
  Country: None (occurrence: None)
  Receive Date: 20080416
  Receipt Date: 20080321
  Transmission Date: 20081010
  Serious: No
  Sender: FDA-Public Use
  Company Number: US-BOEHRINGER INGELHEIM GMBH, GERMANY-2008-BP-04494BP

PATIENT
  Sex: Male

DRUGS (4)
  1. SPIRIVA [Suspect]
     Indication: CHRONIC OBSTRUCTIVE PULMONARY DISEASE
     Route: 055
     Dates: start: 20070801
  2. QUINAPRIL HCL [Concomitant]
     Indication: HYPERTENSION
     Route: 048
  3. XANAX [Concomitant]
     Indication: PANIC DISORDER
     Route: 048
  4. ADVAIR HFA [Concomitant]

REACTIONS (1)
  - BLOOD PRESSURE INCREASED [None]
